FAERS Safety Report 4930845-0 (Version None)
Quarter: 2006Q1

REPORT INFORMATION
  Report Type: 
  Country: None (occurrence: None)
  Receive Date: 20060302
  Receipt Date: 20051003
  Transmission Date: 20060701
  Serious: Yes (Hospitalization)
  Sender: FDA-Public Use
  Company Number: JP-BOEHRINGER INGELHEIM PHARMACEUTICALS, INC.-2005-BP-18177NB

PATIENT
  Sex: Male
  Weight: 58 kg

DRUGS (4)
  1. SPIRIVA [Suspect]
     Indication: EMPHYSEMA
     Route: 055
     Dates: start: 20050802, end: 20050913
  2. SEREVENT [Suspect]
     Indication: EMPHYSEMA
     Route: 055
     Dates: start: 20050802, end: 20050913
  3. FLUTIDE [Suspect]
     Indication: EMPHYSEMA
     Route: 055
     Dates: start: 20050802, end: 20050913
  4. UNIPHYL [Suspect]
     Indication: EMPHYSEMA
     Route: 048
     Dates: start: 20050802, end: 20050913

REACTIONS (1)
  - EOSINOPHILIC PNEUMONIA [None]
